FAERS Safety Report 8190884-6 (Version None)
Quarter: 2012Q1

REPORT INFORMATION
  Report Type: 
  Country: None (occurrence: None)
  Receive Date: 20120307
  Receipt Date: 20120228
  Transmission Date: 20120608
  Serious: Yes (Hospitalization, Other)
  Sender: FDA-Public Use
  Company Number: US-BAYER-2011-085306

PATIENT
  Age: 26 Year
  Sex: Female
  Weight: 127 kg

DRUGS (2)
  1. YAZ [Suspect]
     Indication: MENSTRUATION IRREGULAR
     Dosage: UNK
     Dates: start: 20070301, end: 20090101
  2. CLARITIN [Concomitant]
     Indication: MULTIPLE ALLERGIES
     Dosage: ONE PER DAY
     Route: 048

REACTIONS (7)
  - INJURY [None]
  - ANXIETY [None]
  - CHOLELITHIASIS [None]
  - GALLBLADDER PAIN [None]
  - PAIN [None]
  - EMOTIONAL DISTRESS [None]
  - CHOLECYSTITIS CHRONIC [None]
